FAERS Safety Report 9142150 (Version 2)
Quarter: 2013Q2

REPORT INFORMATION
  Report Type: Spontaneous
  Country: US (occurrence: US)
  Receive Date: 20130305
  Receipt Date: 20130404
  Transmission Date: 20140414
  Serious: No
  Sender: FDA-Public Use
  Company Number: US-AMGEN-USASP2013013262

PATIENT
  Age: 17 Year
  Sex: Female
  Weight: 86.16 kg

DRUGS (1)
  1. ENBREL [Suspect]
     Indication: PSORIASIS
     Dosage: 50 MG, 2 TIMES/WK
     Route: 058
     Dates: start: 20040521, end: 201208

REACTIONS (3)
  - Contusion [Unknown]
  - Injury [Recovered/Resolved]
  - Psoriasis [Not Recovered/Not Resolved]
